FAERS Safety Report 16082856 (Version 2)
Quarter: 2019Q2

REPORT INFORMATION
  Report Type: Spontaneous
  Country: AR (occurrence: AR)
  Receive Date: 20190318
  Receipt Date: 20190416
  Transmission Date: 20190711
  Serious: Yes (Other)
  Sender: FDA-Public Use
  Company Number: AR-AMGEN-ARGSP2019041118

PATIENT
  Age: 62 Year
  Sex: Female

DRUGS (1)
  1. ENBREL [Suspect]
     Active Substance: ETANERCEPT
     Indication: RHEUMATOID ARTHRITIS
     Dosage: 50 MILLIGRAM, 1 DOSE EVERY 8 DAYS
     Route: 065
     Dates: start: 20110804

REACTIONS (2)
  - Product use issue [Unknown]
  - Infection [Recovering/Resolving]

NARRATIVE: CASE EVENT DATE: 20110804
